FAERS Safety Report 12711531 (Version 1)
Quarter: 2016Q3

REPORT INFORMATION
  Report Type: Spontaneous
  Country: US (occurrence: JP)
  Receive Date: 20160902
  Receipt Date: 20160902
  Transmission Date: 20161109
  Serious: No
  Sender: FDA-Public Use
  Company Number: JP-FRI-1000087130

PATIENT
  Sex: Female

DRUGS (2)
  1. SUVOREXANT. [Concomitant]
     Active Substance: SUVOREXANT
  2. ASENAPINE [Suspect]
     Active Substance: ASENAPINE
     Route: 060
     Dates: start: 2016

REACTIONS (2)
  - Pruritus [Unknown]
  - Eczema [Unknown]

NARRATIVE: CASE EVENT DATE: 2016
